FAERS Safety Report 14206822 (Version 9)
Quarter: 2019Q2

REPORT INFORMATION
  Report Type: Report from Study
  Country: DE (occurrence: DE)
  Receive Date: 20171121
  Receipt Date: 20190624
  Transmission Date: 20190711
  Serious: Yes (Hospitalization)
  Sender: FDA-Public Use
  Company Number: DE-ROCHE-2024882

PATIENT
  Age: 60 Year
  Sex: Female
  Weight: 53 kg

DRUGS (12)
  1. PANTOZOL [Concomitant]
     Active Substance: PANTOPRAZOLE SODIUM
     Route: 048
     Dates: start: 20171221, end: 20180712
  2. FUROSEMID [FUROSEMIDE] [Concomitant]
     Indication: BLOOD POTASSIUM INCREASED
     Route: 048
     Dates: start: 20171121
  3. CLOBETASOL [Concomitant]
     Active Substance: CLOBETASOL
     Indication: ERYTHEMA
     Dosage: DOSE: 1 OTHER
     Route: 061
     Dates: start: 20180507
  4. PANTOZOL [Concomitant]
     Active Substance: PANTOPRAZOLE SODIUM
     Route: 048
     Dates: start: 20171115, end: 20171220
  5. PREDNISOLONE. [Concomitant]
     Active Substance: PREDNISOLONE
     Route: 048
     Dates: start: 20180103, end: 20180109
  6. VEMURAFENIB. [Suspect]
     Active Substance: VEMURAFENIB
     Indication: MALIGNANT MELANOMA
     Dosage: DATE OF MOST RECENT DOSE OF VEMURAFENIB PRIOR TO AE ONSET: 10/NOV/2017
     Route: 048
     Dates: start: 20171101
  7. COBIMETINIB. [Suspect]
     Active Substance: COBIMETINIB
     Indication: MALIGNANT MELANOMA
     Dosage: DATE OF MOST RECENT DOSE OF COBIMETINIB (60MG) PROIR TO AE ONSET: 10/NOV/2017
     Route: 048
     Dates: start: 20171101
  8. PREDNISOLONE. [Concomitant]
     Active Substance: PREDNISOLONE
     Route: 048
     Dates: start: 20180110, end: 20180114
  9. SOOLANTRA [Concomitant]
     Active Substance: IVERMECTIN
     Indication: ERYTHEMA
     Dosage: DOSE: 1 OTHER
     Route: 061
     Dates: start: 20180504
  10. PREDNISOLONE. [Concomitant]
     Active Substance: PREDNISOLONE
     Indication: ASPARTATE AMINOTRANSFERASE INCREASED
     Route: 048
     Dates: start: 20171221, end: 20171227
  11. PREDNISOLONE. [Concomitant]
     Active Substance: PREDNISOLONE
     Indication: ALANINE AMINOTRANSFERASE INCREASED
     Route: 048
     Dates: start: 20171228, end: 20180102
  12. CLARELUX [Concomitant]
     Active Substance: CLOBETASOL PROPIONATE
     Indication: ERYTHEMA
     Dosage: DOSE: 1 OTHER
     Route: 061
     Dates: start: 20180504

REACTIONS (1)
  - Drug reaction with eosinophilia and systemic symptoms [Recovered/Resolved]

NARRATIVE: CASE EVENT DATE: 20171112
